FAERS Safety Report 5188586-3 (Version None)
Quarter: 2006Q4

REPORT INFORMATION
  Report Type: 
  Country: None (occurrence: None)
  Receive Date: 20061221
  Receipt Date: 20061218
  Transmission Date: 20070319
  Serious: Yes (Other)
  Sender: FDA-Public Use
  Company Number: US-ELI_LILLY_AND_COMPANY-US200612003156

PATIENT
  Age: 64 Year
  Sex: Female

DRUGS (2)
  1. HUMALOG MIX 50/50 [Suspect]
     Dosage: UNK, UNKNOWN
  2. HUMULIN 70/30 [Suspect]
     Dosage: UNK, UNKNOWN

REACTIONS (7)
  - ABDOMINAL HERNIA [None]
  - ARTHRITIS [None]
  - BLOOD GLUCOSE INCREASED [None]
  - MEDICAL DEVICE COMPLICATION [None]
  - PHARMACEUTICAL PRODUCT COMPLAINT [None]
  - PULMONARY EMBOLISM [None]
  - WEIGHT DECREASED [None]
